FAERS Safety Report 25881284 (Version 1)
Quarter: 2025Q4

REPORT INFORMATION
  Report Type: Spontaneous
  Country: US (occurrence: US)
  Receive Date: 20251004
  Receipt Date: 20251004
  Transmission Date: 20260117
  Serious: No
  Sender: GLAXOSMITHKLINE
  Company Number: US-GSK-US2025AMR119634

PATIENT

DRUGS (3)
  1. BENLYSTA [Suspect]
     Active Substance: BELIMUMAB
     Indication: Connective tissue disorder
     Dosage: UNK
  2. BENLYSTA [Suspect]
     Active Substance: BELIMUMAB
     Indication: Irritable bowel syndrome
  3. BENLYSTA [Suspect]
     Active Substance: BELIMUMAB
     Indication: Sjogren^s syndrome

REACTIONS (1)
  - Off label use [Unknown]
